FAERS Safety Report 8962968 (Version 2)
Quarter: 2012Q4

REPORT INFORMATION
  Report Type: 
  Country: HK (occurrence: HK)
  Receive Date: 20121213
  Receipt Date: 20121221
  Transmission Date: 20130627
  Serious: Yes (Hospitalization, Other)
  Sender: FDA-Public Use
  Company Number: HK-PFIZER INC-2012313937

PATIENT
  Age: 60 Year
  Sex: Male

DRUGS (3)
  1. PRISTIQ [Suspect]
     Dosage: 50 mg, UNK
  2. DINSIA [Suspect]
     Dosage: UNK
  3. MINIPRESS [Concomitant]
     Indication: BPH
     Dosage: UNK

REACTIONS (2)
  - Urinary retention [Recovered/Resolved]
  - Urinary tract infection [Recovered/Resolved]
